FAERS Safety Report 4915288-8 (Version None)
Quarter: 2006Q1

REPORT INFORMATION
  Report Type: 
  Country: None (occurrence: None)
  Receive Date: 20060217
  Receipt Date: 20051212
  Transmission Date: 20060701
  Serious: Yes (Other)
  Sender: FDA-Public Use
  Company Number: CA-GLAXOSMITHKLINE-A0586361A

PATIENT
  Age: 29 Year
  Sex: Female
  Weight: 68.2 kg

DRUGS (1)
  1. VALTREX [Suspect]
     Indication: HERPES SIMPLEX
     Dosage: 500MG TWICE PER DAY
     Route: 048
     Dates: start: 20050212, end: 20050217

REACTIONS (6)
  - ANXIETY [None]
  - ARRHYTHMIA [None]
  - CHEST DISCOMFORT [None]
  - DYSPNOEA [None]
  - EXTRASYSTOLES [None]
  - TACHYCARDIA [None]
